FAERS Safety Report 7356014-5 (Version None)
Quarter: 2011Q1

REPORT INFORMATION
  Report Type: 
  Country: None (occurrence: None)
  Receive Date: 20110316
  Receipt Date: 20110314
  Transmission Date: 20110831
  Serious: Yes (Other)
  Sender: FDA-Public Use
  Company Number: US-EISAI INC-E2020-08774-SPO-US

PATIENT
  Age: 77 Year
  Sex: Female

DRUGS (16)
  1. ACTONEL [Concomitant]
  2. TRAMADOL [Concomitant]
  3. SIMVASTATIN [Concomitant]
  4. ARICEPT [Suspect]
     Indication: DEMENTIA
     Dosage: UNKNOWN
     Route: 048
     Dates: start: 20070101, end: 20110308
  5. PLAVIX [Concomitant]
  6. NAMENDA [Suspect]
     Indication: DEMENTIA
     Route: 048
     Dates: start: 20080101, end: 20110308
  7. ZANTAC [Concomitant]
  8. TRICOR [Concomitant]
  9. ASPIRIN [Concomitant]
  10. VITAMIN D [Concomitant]
  11. MIACALCIN [Concomitant]
  12. TYLENOL (CAPLET) [Concomitant]
  13. REMERON [Concomitant]
  14. AMLODIPINE [Concomitant]
  15. LEVOTHYROXINE [Concomitant]
  16. MULTI-VITAMIN [Concomitant]

REACTIONS (1)
  - ELECTROCARDIOGRAM QT PROLONGED [None]
